FAERS Safety Report 18198437 (Version 1)
Quarter: 2020Q3

REPORT INFORMATION
  Report Type: Spontaneous
  Country: IT (occurrence: IT)
  Receive Date: 20200826
  Receipt Date: 20200826
  Transmission Date: 20201103
  Serious: Yes (Hospitalization)
  Sender: FDA-Public Use
  Company Number: IT-MYLANLABS-2020M1073987

PATIENT
  Age: 63 Year
  Sex: Female

DRUGS (7)
  1. LOPINAVIR/RITONAVIR [Suspect]
     Active Substance: LOPINAVIR\RITONAVIR
     Indication: COVID-19
     Dosage: UNK, BID 200MG/50MG TWO TABLETS TWICE DAILY
     Route: 065
  2. ENOXAPARIN [Suspect]
     Active Substance: ENOXAPARIN
     Indication: COVID-19
     Dosage: 6000 INTERNATIONAL UNIT
     Route: 065
  3. HYDROXYCHLOROQUINE [Suspect]
     Active Substance: HYDROXYCHLOROQUINE
     Indication: COVID-19
     Dosage: 200 MILLIGRAM
     Route: 065
  4. RUXOLITINIB [Interacting]
     Active Substance: RUXOLITINIB
     Indication: COVID-19
     Dosage: 5 MILLIGRAM2 TABLETS/DAY FOR 3 DAYS
     Route: 065
  5. RUXOLITINIB [Interacting]
     Active Substance: RUXOLITINIB
     Dosage: 10 MILLIGRAM DOSE DOUBLED
     Route: 065
  6. RUXOLITINIB [Interacting]
     Active Substance: RUXOLITINIB
     Dosage: 5 MILLIGRAM, QD
     Route: 065
  7. LEVOTHYROXINE. [Concomitant]
     Active Substance: LEVOTHYROXINE
     Indication: HYPOTHYROIDISM
     Dosage: UNK
     Route: 065

REACTIONS (7)
  - Drug interaction [Unknown]
  - Drug level increased [Unknown]
  - Off label use [Unknown]
  - Oral herpes [Unknown]
  - Dermatitis exfoliative generalised [Unknown]
  - Haemoglobin decreased [Unknown]
  - Haematocrit decreased [Unknown]
